FAERS Safety Report 4375688-4 (Version None)
Quarter: 2004Q2

REPORT INFORMATION
  Report Type: 
  Country: None (occurrence: None)
  Receive Date: 20040607
  Receipt Date: 20040525
  Transmission Date: 20050107
  Serious: Yes (Hospitalization, Other)
  Sender: FDA-Public Use
  Company Number: US-JNJFOC-20040303030

PATIENT
  Age: 33 Year
  Sex: Female
  Weight: 97.5234 kg

DRUGS (6)
  1. REMICADE [Suspect]
     Indication: CROHN'S DISEASE
     Dosage: 5 MG/KG , INTRAVENOUS
     Route: 042
     Dates: start: 20040309
  2. IMURAN [Concomitant]
  3. PREDNISONE [Concomitant]
  4. NEXIUM [Concomitant]
  5. EFFEXOR [Concomitant]
  6. TYLENOL PM [Concomitant]

REACTIONS (9)
  - BLADDER SPASM [None]
  - CYANOSIS [None]
  - ERYTHEMA [None]
  - FEELING ABNORMAL [None]
  - NEPHROLITHIASIS [None]
  - OXYGEN SATURATION DECREASED [None]
  - PRURITUS GENERALISED [None]
  - THROAT TIGHTNESS [None]
  - URINE OUTPUT INCREASED [None]
